FAERS Safety Report 15712048 (Version 4)
Quarter: 2019Q2

REPORT INFORMATION
  Report Type: Spontaneous
  Country: US (occurrence: US)
  Receive Date: 20181212
  Receipt Date: 20190426
  Transmission Date: 20190711
  Serious: Yes (Other)
  Sender: FDA-Public Use
  Company Number: US-009507513-1812USA004376

PATIENT
  Age: 71 Year
  Sex: Female

DRUGS (6)
  1. ENOXAPARIN SODIUM. [Concomitant]
     Active Substance: ENOXAPARIN SODIUM
  2. OXYCODONE [Concomitant]
     Active Substance: OXYCODONE
  3. LORAZEPAM. [Concomitant]
     Active Substance: LORAZEPAM
  4. KEYTRUDA [Suspect]
     Active Substance: PEMBROLIZUMAB
     Indication: NON-SMALL CELL LUNG CANCER
     Dosage: 200 MILLIGRAM, Q3 WEEKS
  5. FUROSEMIDE. [Concomitant]
     Active Substance: FUROSEMIDE
  6. MIRTAZAPINE. [Concomitant]
     Active Substance: MIRTAZAPINE

REACTIONS (4)
  - Immune thrombocytopenic purpura [Unknown]
  - Autoimmune haemolytic anaemia [Not Recovered/Not Resolved]
  - Acute kidney injury [Unknown]
  - Immune-mediated hepatitis [Unknown]
